FAERS Safety Report 7079324-8 (Version None)
Quarter: 2010Q4

REPORT INFORMATION
  Report Type: 
  Country: None (occurrence: None)
  Receive Date: 20101102
  Receipt Date: 20100318
  Transmission Date: 20110411
  Serious: No
  Sender: FDA-Public Use
  Company Number: A0850876A

PATIENT
  Age: 65 Year
  Sex: Female

DRUGS (5)
  1. RYTHMOL SR [Suspect]
     Indication: ARRHYTHMIA
     Dosage: 225MG TWICE PER DAY
     Route: 048
     Dates: start: 20100201
  2. LEVOXYL [Concomitant]
  3. ATENOLOL [Concomitant]
  4. ESTROGEN [Concomitant]
  5. VITAMINS [Concomitant]

REACTIONS (4)
  - ASTHENIA [None]
  - FATIGUE [None]
  - FEELING HOT [None]
  - HYPOTENSION [None]
